FAERS Safety Report 9305467 (Version 1)
Quarter: 2013Q2

REPORT INFORMATION
  Report Type: Spontaneous
  Country: US (occurrence: US)
  Receive Date: 20130523
  Receipt Date: 20130523
  Transmission Date: 20140414
  Serious: No
  Sender: FDA-Public Use
  Company Number: US-BAYER-2013-063775

PATIENT
  Age: 71 Year
  Sex: Female

DRUGS (4)
  1. ALEVE CAPLET [Suspect]
     Dosage: 2 DF, BID
     Route: 048
     Dates: start: 20130517
  2. PROTONIX [Concomitant]
  3. SAM-E [Concomitant]
  4. VITAMIN D [Concomitant]

REACTIONS (1)
  - Incorrect dose administered [Not Recovered/Not Resolved]
